FAERS Safety Report 14340431 (Version 1)
Quarter: 2018Q1

REPORT INFORMATION
  Report Type: Spontaneous
  Country: BR (occurrence: BR)
  Receive Date: 20180101
  Receipt Date: 20180101
  Transmission Date: 20180509
  Serious: Yes (Other)
  Sender: FDA-Public Use
  Company Number: BR-ROCHE-2045053

PATIENT
  Sex: Female

DRUGS (3)
  1. RIVOTRIL [Suspect]
     Active Substance: CLONAZEPAM
     Indication: SLEEP DISORDER THERAPY
  2. RIVOTRIL [Suspect]
     Active Substance: CLONAZEPAM
     Indication: SYNCOPE
     Route: 065
  3. SERTRALINE [Concomitant]
     Active Substance: SERTRALINE HYDROCHLORIDE

REACTIONS (8)
  - Breast cancer [Unknown]
  - Agitation [Unknown]
  - Nervousness [Unknown]
  - Neoplasm malignant [Unknown]
  - Lung neoplasm malignant [Unknown]
  - Off label use [Unknown]
  - Drug ineffective [Unknown]
  - Metastasis [Unknown]
